FAERS Safety Report 9769559 (Version 1)
Quarter: 2013Q4

REPORT INFORMATION
  Report Type: Spontaneous
  Country: US (occurrence: US)
  Receive Date: 20131218
  Receipt Date: 20131218
  Transmission Date: 20140711
  Serious: No
  Sender: FDA-Public Use
  Company Number: US-SHIONOGI, INC-2013000342

PATIENT
  Age: 62 Year
  Sex: Female
  Weight: 59.86 kg

DRUGS (3)
  1. OSPHENA [Suspect]
     Indication: DYSPAREUNIA
     Dosage: 60 MG, QD
     Route: 048
     Dates: start: 20131017, end: 20131018
  2. OSPHENA [Suspect]
     Indication: ATROPHIC VULVOVAGINITIS
  3. ESTRACE [Concomitant]
     Indication: ATROPHIC VULVOVAGINITIS
     Dosage: UNK
     Route: 065
     Dates: start: 2010, end: 20131013

REACTIONS (1)
  - Drug hypersensitivity [Unknown]
